FAERS Safety Report 6343381-4 (Version None)
Quarter: 2009Q3

REPORT INFORMATION
  Report Type: 
  Country: None (occurrence: None)
  Receive Date: 20090908
  Receipt Date: 20090831
  Transmission Date: 20100115
  Serious: Yes (Other)
  Sender: FDA-Public Use
  Company Number: PHHY2009IT37079

PATIENT
  Sex: Male

DRUGS (4)
  1. ZOMETA [Suspect]
     Indication: MULTIPLE MYELOMA
     Dosage: 4 MG, CYCLIC
     Route: 042
     Dates: start: 20020101, end: 20060331
  2. THALIDOMIDE [Concomitant]
  3. NOLVADEX [Concomitant]
  4. CASODEX [Concomitant]

REACTIONS (1)
  - OSTEOMYELITIS [None]
